FAERS Safety Report 7161227-1 (Version None)
Quarter: 2010Q4

REPORT INFORMATION
  Report Type: 
  Country: None (occurrence: None)
  Receive Date: 20101201
  Receipt Date: 20101121
  Transmission Date: 20110411
  Serious: Yes (Other)
  Sender: FDA-Public Use
  Company Number: 2010SP061335

PATIENT
  Age: 50 Year
  Sex: Female

DRUGS (1)
  1. PEG-INTRON [Suspect]
     Indication: HEPATITIS C

REACTIONS (4)
  - ASTHMA [None]
  - BONE PAIN [None]
  - CONDITION AGGRAVATED [None]
  - HYPERHIDROSIS [None]
